FAERS Safety Report 7535666-0 (Version None)
Quarter: 2011Q2

REPORT INFORMATION
  Report Type: 
  Country: None (occurrence: None)
  Receive Date: 20110524
  Receipt Date: 20110524
  Transmission Date: 20111010
  Serious: No
  Sender: FDA-Public Use
  Company Number: 031046

PATIENT
  Sex: Female

DRUGS (1)
  1. CIMZIA [Suspect]
     Indication: RHEUMATOID ARTHRITIS
     Dosage: 200MG 1X/2 WEEKS SUBCUTANEOUS
     Route: 058
     Dates: start: 20101201, end: 20110301

REACTIONS (1)
  - DRUG INEFFECTIVE [None]
